FAERS Safety Report 19391034 (Version 10)
Quarter: 2025Q1

REPORT INFORMATION
  Report Type: Spontaneous
  Country: US (occurrence: US)
  Receive Date: 20210608
  Receipt Date: 20250109
  Transmission Date: 20250409
  Serious: Yes (Other)
  Sender: PFIZER
  Company Number: US-PFIZER INC-2020498300

PATIENT
  Age: 70 Year
  Sex: Male
  Weight: 91.04 kg

DRUGS (4)
  1. BOSULIF [Suspect]
     Active Substance: BOSUTINIB MONOHYDRATE
     Indication: Chronic myeloid leukaemia
     Dosage: 100 MG, DAILY
     Route: 048
  2. BOSULIF [Suspect]
     Active Substance: BOSUTINIB MONOHYDRATE
     Dosage: 100 MG TABLET: 4 TABLETS 1X/DAY
     Route: 048
  3. BOSULIF [Suspect]
     Active Substance: BOSUTINIB MONOHYDRATE
     Dosage: 400 MG TABLET: 1 TABLET DAILY
     Route: 048
  4. BOSULIF [Suspect]
     Active Substance: BOSUTINIB MONOHYDRATE
     Dosage: 100 MG TABLET: 4 TABLETS DAILY
     Route: 048

REACTIONS (6)
  - Second primary malignancy [Unknown]
  - Neoplasm malignant [Unknown]
  - Prostatic specific antigen increased [Unknown]
  - Eating disorder [Unknown]
  - COVID-19 [Unknown]
  - Weight increased [Unknown]
